FAERS Safety Report 9863006 (Version 1)
Quarter: 2014Q1

REPORT INFORMATION
  Report Type: Report from Study
  Country: TW (occurrence: TW)
  Receive Date: 20140203
  Receipt Date: 20140203
  Transmission Date: 20141002
  Serious: No
  Sender: FDA-Public Use
  Company Number: PHHY2014TW012462

PATIENT
  Age: 73 Year
  Sex: Male

DRUGS (26)
  1. AMN107 [Suspect]
     Dosage: UNK
     Dates: start: 20111219
  2. ACETAMINOPHEN [Concomitant]
     Indication: UPPER RESPIRATORY TRACT INFECTION
     Dates: start: 20120926, end: 20120929
  3. ACETYLSALICYLATE [Concomitant]
     Indication: PROPHYLAXIS
     Dates: start: 20130220
  4. AMLODIPINE [Concomitant]
     Indication: HYPERTENSION
     Dates: start: 20120926
  5. ATENOLOL [Concomitant]
     Indication: HYPERTENSION
     Dates: start: 20131120, end: 20131218
  6. ATROPINE [Concomitant]
     Indication: ACUTE PULMONARY OEDEMA
     Dates: start: 20131216, end: 20131216
  7. ATROPINE [Concomitant]
     Indication: SINUS BRADYCARDIA
     Dates: start: 20140103, end: 20140103
  8. CALCIUM CHLORIDE [Concomitant]
     Indication: HYPOCALCAEMIA
     Dates: start: 20140103, end: 20140103
  9. CEFAZOLIN [Concomitant]
     Indication: INFECTION PROPHYLAXIS
     Dates: start: 20140107, end: 20140107
  10. FUROSEMIDE [Concomitant]
     Indication: ACUTE PULMONARY OEDEMA
     Dates: start: 20131216, end: 20131220
  11. FUROSEMIDE [Concomitant]
     Indication: PLEURAL EFFUSION
     Dates: start: 20140105
  12. HYDROCHLOROTHIAZIDE [Concomitant]
     Indication: HYPERTENSION
     Dates: start: 20130930, end: 20131025
  13. HYDROCHLOROTHIAZIDE [Concomitant]
     Indication: PLEURAL EFFUSION
     Dates: start: 20140102
  14. ISOSORBIDE DINITRATE [Concomitant]
     Indication: ACUTE PULMONARY OEDEMA
     Dates: start: 20131216, end: 20131217
  15. LOSARTAN [Concomitant]
     Indication: HYPERTENSION
     Dates: start: 20130513, end: 20130902
  16. LOSARTAN POTASSIUM AND HYDROCHLOROTHIAZIDE [Concomitant]
     Indication: HYPERTENSION
     Dates: start: 20130902, end: 20131025
  17. NIFEDIPINE [Concomitant]
     Indication: HYPERTENSION
     Dates: start: 20130513, end: 20131014
  18. NORVASC [Concomitant]
     Indication: HYPERTENSION
     Dates: start: 20120808, end: 20120925
  19. PROPRANOLOL [Concomitant]
     Indication: PALPITATIONS
     Dates: start: 20121219, end: 20130102
  20. PROPRANOLOL [Concomitant]
     Dates: start: 20130415, end: 20130422
  21. PROPRANOLOL [Concomitant]
     Dates: start: 20130708, end: 20130930
  22. QUINAPRIL [Concomitant]
     Indication: HYPERTENSION
     Dates: start: 20120926, end: 20121218
  23. TAMLOSIN [Concomitant]
     Indication: BENIGN PROSTATIC HYPERPLASIA
     Dates: start: 20130123, end: 20130805
  24. TAMSULOSIN HYDROCHLORIDE [Concomitant]
     Indication: BENIGN PROSTATIC HYPERPLASIA
     Dates: start: 20131120, end: 20131218
  25. XANAX [Concomitant]
     Indication: ANXIETY
     Dates: start: 20120307, end: 20120731
  26. XANAX [Concomitant]
     Dates: start: 20131023

REACTIONS (1)
  - Muscular weakness [Unknown]
